FAERS Safety Report 4901168-0 (Version None)
Quarter: 2006Q1

REPORT INFORMATION
  Report Type: 
  Country: None (occurrence: None)
  Receive Date: 20060201
  Receipt Date: 20060131
  Transmission Date: 20060701
  Serious: Yes (Hospitalization, Other)
  Sender: FDA-Public Use
  Company Number: FRWYE341327JAN06

PATIENT
  Age: 80 Year
  Sex: Female

DRUGS (4)
  1. EFFEXOR XR [Suspect]
     Indication: DEPRESSION
     Dosage: 75 MG TOTAL DAILY
     Route: 048
     Dates: start: 20050801, end: 20050101
  2. EFFEXOR XR [Suspect]
     Indication: DEPRESSION
     Dosage: 75 MG TOTAL DAILY
     Route: 048
     Dates: start: 20040601, end: 20050701
  3. HYTACAND (CANDESARTAN CILEXETIL/HYDROCHLOROTHIAZIDE) [Suspect]
     Dates: end: 20050701
  4. SOTALOL HCL [Concomitant]

REACTIONS (5)
  - APATHY [None]
  - CONFUSIONAL STATE [None]
  - DRUG INTERACTION [None]
  - GENERAL PHYSICAL HEALTH DETERIORATION [None]
  - HYPONATRAEMIA [None]
